FAERS Safety Report 8987532 (Version 1)
Quarter: 2012Q4

REPORT INFORMATION
  Report Type: 
  Country: US (occurrence: US)
  Receive Date: 20121227
  Receipt Date: 20121227
  Transmission Date: 20130627
  Serious: Yes (Other)
  Sender: FDA-Public Use
  Company Number: PHEH2012US025220

PATIENT
  Sex: Female
  Weight: 87.73 kg

DRUGS (1)
  1. GILENYA [Suspect]
     Indication: MULTIPLE SCLEROSIS
     Dosage: UNK UKN, UNK
     Route: 048

REACTIONS (6)
  - Neurogenic bladder [Unknown]
  - Dysuria [Unknown]
  - Fatigue [Recovered/Resolved]
  - Blood pressure increased [Unknown]
  - Paraesthesia [Unknown]
  - Headache [Unknown]
